FAERS Safety Report 12081471 (Version 3)
Quarter: 2018Q2

REPORT INFORMATION
  Report Type: Spontaneous
  Country: US (occurrence: US)
  Receive Date: 20160216
  Receipt Date: 20180515
  Transmission Date: 20180711
  Serious: Yes (Hospitalization)
  Sender: FDA-Public Use
  Company Number: US-SA-2016SA025942

PATIENT
  Age: 36 Year
  Sex: Male
  Weight: 77.1 kg

DRUGS (13)
  1. SYNTHROID [Concomitant]
     Active Substance: LEVOTHYROXINE SODIUM
  2. FENOFIBRATE. [Concomitant]
     Active Substance: FENOFIBRATE
  3. METFORMIN [Concomitant]
     Active Substance: METFORMIN HYDROCHLORIDE
  4. TOUJEO [Suspect]
     Active Substance: INSULIN GLARGINE
     Indication: BLOOD GLUCOSE INCREASED
     Dosage: DOSE:16 UNIT(S)
     Route: 065
     Dates: start: 20150818, end: 20151015
  5. SOLOSTAR [Concomitant]
     Active Substance: DEVICE
     Dates: start: 20150818, end: 20151015
  6. CYMBALTA [Concomitant]
     Active Substance: DULOXETINE HYDROCHLORIDE
  7. SOMATROPIN. [Concomitant]
     Active Substance: SOMATROPIN
  8. ANDROGEL [Concomitant]
     Active Substance: TESTOSTERONE
  9. LISINOPRIL. [Concomitant]
     Active Substance: LISINOPRIL
  10. LANSOPRAZOLE. [Concomitant]
     Active Substance: LANSOPRAZOLE
  11. JANUVIA [Concomitant]
     Active Substance: SITAGLIPTIN PHOSPHATE
  12. OMEPRAZOLE. [Concomitant]
     Active Substance: OMEPRAZOLE
  13. SIMVASTATIN. [Concomitant]
     Active Substance: SIMVASTATIN

REACTIONS (20)
  - Dysarthria [Recovered/Resolved]
  - Malaise [Recovered/Resolved]
  - Decreased appetite [Recovered/Resolved]
  - Weight decreased [Recovered/Resolved]
  - Confusional state [Recovered/Resolved]
  - Fumbling [Recovered/Resolved]
  - Impaired driving ability [Recovered/Resolved]
  - Headache [Recovered/Resolved]
  - Asthenia [Recovered/Resolved]
  - Gait disturbance [Recovered/Resolved]
  - Illusion [Recovered/Resolved]
  - Feeling abnormal [Recovered/Resolved]
  - Incorrect dose administered [Unknown]
  - Mental disorder [Recovered/Resolved]
  - Decreased interest [Recovered/Resolved]
  - Fall [Unknown]
  - Blood glucose decreased [Recovered/Resolved]
  - Dizziness [Recovered/Resolved]
  - Amnesia [Recovered/Resolved]
  - Hallucination [Recovered/Resolved]
